FAERS Safety Report 7190547-X (Version None)
Quarter: 2010Q4

REPORT INFORMATION
  Report Type: 
  Country: None (occurrence: None)
  Receive Date: 20101223
  Receipt Date: 20101215
  Transmission Date: 20110411
  Serious: Yes (Death)
  Sender: FDA-Public Use
  Company Number: RO-TEVA-2010XM22-04-00106

PATIENT
  Sex: Male
  Weight: 71 kg

DRUGS (20)
  1. XM22 PEG-FILGRASTIM [Suspect]
     Indication: COLONY STIMULATING FACTOR PROPHYLAXIS
     Dosage: BLINDED XM22 6 MG OR PLACEBO
     Route: 058
     Dates: start: 20101001, end: 20101001
  2. CISPLATIN [Suspect]
     Indication: NON-SMALL CELL LUNG CANCER
     Route: 041
     Dates: start: 20100928, end: 20100928
  3. ETOPOSIDE [Suspect]
     Indication: NON-SMALL CELL LUNG CANCER
     Route: 041
     Dates: start: 20100928, end: 20100930
  4. PREGABALIN [Concomitant]
     Indication: NEURALGIA
     Route: 048
     Dates: start: 20100922, end: 20101005
  5. NEBIVOLOL HCL [Concomitant]
     Indication: CARDIAC DISORDER
     Route: 048
     Dates: start: 20100923, end: 20101005
  6. ACETYLCYSTEINE [Concomitant]
     Indication: COUGH
     Route: 048
     Dates: start: 20100920, end: 20101005
  7. DIHYDROCODEINE BITARTRATE [Concomitant]
     Indication: CHEST PAIN
     Route: 048
     Dates: start: 20100920, end: 20101005
  8. RANITIDINE [Concomitant]
     Indication: GASTRITIS PROPHYLAXIS
     Route: 042
     Dates: start: 20100928, end: 20101001
  9. DEXAMETHASONE [Concomitant]
     Indication: ALLERGY PROPHYLAXIS
     Route: 042
     Dates: start: 20100928, end: 20100928
  10. ONDANSETRON [Concomitant]
     Indication: PROPHYLAXIS OF NAUSEA AND VOMITING
     Route: 042
     Dates: start: 20100928, end: 20100928
  11. ONDANSETRON [Concomitant]
     Indication: VOMITING
     Route: 042
     Dates: start: 20100929, end: 20101005
  12. MANNITOL 20% [Concomitant]
     Indication: PROPHYLAXIS
     Route: 042
     Dates: start: 20100928, end: 20100928
  13. FUROSEMIDE [Concomitant]
     Indication: PROPHYLAXIS
     Route: 042
     Dates: start: 20100928, end: 20100928
  14. METOCLOPRAMIDE [Concomitant]
     Indication: VOMITING
     Route: 042
     Dates: start: 20100929, end: 20101005
  15. LOPERAMIDE HYDROCHLORIDE [Concomitant]
     Indication: DIARRHOEA
     Route: 048
     Dates: start: 20100929, end: 20101004
  16. SMECTA [Concomitant]
     Indication: DIARRHOEA
     Route: 048
     Dates: start: 20100929, end: 20101004
  17. PYRIDOXINE HYDROCHLORIDE [Concomitant]
     Indication: DEHYDRATION
     Route: 042
     Dates: start: 20101001, end: 20101004
  18. THIAMINE HYDROCHLORIDE [Concomitant]
     Indication: DEHYDRATION
     Route: 042
     Dates: start: 20101001, end: 20101004
  19. DROTAVERINE HYDROCHLORIDE [Concomitant]
     Indication: ABDOMINAL PAIN
     Route: 042
     Dates: start: 20101001, end: 20101004
  20. DONAGAN [Concomitant]
     Indication: ABDOMINAL PAIN
     Route: 042
     Dates: start: 20101001, end: 20101004

REACTIONS (1)
  - HYPOVOLAEMIC SHOCK [None]
